FAERS Safety Report 4561803-6 (Version None)
Quarter: 2005Q1

REPORT INFORMATION
  Report Type: 
  Country: None (occurrence: None)
  Receive Date: 20050125
  Receipt Date: 20050110
  Transmission Date: 20050727
  Serious: Yes (Death)
  Sender: FDA-Public Use
  Company Number: MC200500040

PATIENT
  Sex: 0

DRUGS (3)
  1. ANGIOMAX [Suspect]
     Dosage: 0.75 MG/KG, BOLUS, IV BOLUS; 1075 MG/KG, INTRAVENOUS
     Route: 040
     Dates: start: 20041101, end: 20041101
  2. ANGIOMAX [Suspect]
     Dosage: 0.75 MG/KG, BOLUS, IV BOLUS; 1075 MG/KG, INTRAVENOUS
     Route: 040
     Dates: start: 20041101, end: 20041101
  3. PLAVIX [Concomitant]

REACTIONS (2)
  - CORONARY ARTERY OCCLUSION [None]
  - PROCEDURAL COMPLICATION [None]
